FAERS Safety Report 5983468-9 (Version None)
Quarter: 2008Q4

REPORT INFORMATION
  Report Type: 
  Country: None (occurrence: None)
  Receive Date: 20081205
  Receipt Date: 20081205
  Transmission Date: 20090506
  Serious: Yes (Other)
  Sender: FDA-Public Use
  Company Number: None

PATIENT
  Age: 27 Year
  Sex: Male
  Weight: 75 kg

DRUGS (4)
  1. CIPRO [Suspect]
     Indication: EPIDIDYMITIS
     Dosage: 500MG BID STOPPED AFTER 5-7 DAYS
     Dates: start: 20080502
  2. CIPRO [Suspect]
     Indication: TESTICULAR MASS
     Dosage: 500MG BID STOPPED AFTER 5-7 DAYS
     Dates: start: 20080502
  3. MOTRIN [Concomitant]
  4. VICODIN [Concomitant]

REACTIONS (2)
  - PAIN [None]
  - PARAESTHESIA [None]
